FAERS Safety Report 6447664-9 (Version None)
Quarter: 2009Q4

REPORT INFORMATION
  Report Type: 
  Country: None (occurrence: None)
  Receive Date: 20091120
  Receipt Date: 20091111
  Transmission Date: 20100525
  Serious: Yes (Hospitalization)
  Sender: FDA-Public Use
  Company Number: DE-RANBAXY-2009RR-23221

PATIENT
  Age: 60 Year
  Sex: Female
  Weight: 74 kg

DRUGS (6)
  1. IBUPROFEN [Suspect]
     Indication: PAIN
     Dosage: 400 MG, TID
     Route: 048
     Dates: start: 20081001, end: 20090102
  2. CELEBREX [Suspect]
     Indication: PAIN
     Dosage: 100 MG, TID
     Route: 048
     Dates: start: 20081001, end: 20090102
  3. BISOPROLOL [Concomitant]
     Indication: HYPERTENSION
     Dosage: 5 MG, BID
     Route: 048
     Dates: start: 19890101
  4. FALITHROM ^HEXAL^ [Concomitant]
     Indication: ATRIAL FIBRILLATION
     Dosage: 1.5 MG, QD
     Route: 048
     Dates: start: 20081014, end: 20090213
  5. PANTOZOL [Concomitant]
     Indication: PROPHYLAXIS AGAINST GASTROINTESTINAL ULCER
     Dosage: 40 MG, QD
     Route: 048
     Dates: start: 20081001
  6. VALORON ^GOEDECKE^ [Concomitant]
     Indication: PAIN
     Dosage: 50 MG, BID
     Route: 048
     Dates: start: 20081001

REACTIONS (1)
  - COLITIS [None]
